FAERS Safety Report 4269885-6 (Version None)
Quarter: 2004Q1

REPORT INFORMATION
  Report Type: 
  Country: None (occurrence: None)
  Receive Date: 20040112
  Receipt Date: 20040108
  Transmission Date: 20041129
  Serious: Yes (Hospitalization)
  Sender: FDA-Public Use
  Company Number: US-SHR-03-012873

PATIENT
  Age: 41 Year
  Sex: Female
  Weight: 102 kg

DRUGS (7)
  1. BETASERON [Suspect]
     Indication: MULTIPLE SCLEROSIS
     Dosage: 8 MIU, EVERY 2D, SUBCUTANEOUS
     Route: 058
     Dates: start: 20020601
  2. BACLOFEN [Concomitant]
  3. NEURONTIN [Concomitant]
  4. NORTRIPTYLINE HCL [Concomitant]
  5. ZANAFLEX [Concomitant]
  6. VALIUM [Concomitant]
  7. ZOCOR [Concomitant]

REACTIONS (6)
  - ANKLE FRACTURE [None]
  - ANOREXIA [None]
  - ASTHMA [None]
  - BRONCHITIS [None]
  - FALL [None]
  - JOINT SPRAIN [None]
